FAERS Safety Report 10162616 (Version 1)
Quarter: 2014Q2

REPORT INFORMATION
  Report Type: Spontaneous
  Country: US (occurrence: US)
  Receive Date: 20140509
  Receipt Date: 20140509
  Transmission Date: 20141212
  Serious: No
  Sender: FDA-Public Use
  Company Number: US-009507513-1405USA001198

PATIENT
  Sex: Female

DRUGS (3)
  1. OXYTROL FOR WOMEN [Suspect]
     Indication: URINARY INCONTINENCE
     Dosage: UNK, UNKNOWN
     Route: 062
     Dates: start: 20140425
  2. OXYTROL FOR WOMEN [Suspect]
     Indication: NOCTURIA
  3. OXYTROL FOR WOMEN [Suspect]
     Indication: POLLAKIURIA

REACTIONS (1)
  - Drug ineffective [Unknown]
